FAERS Safety Report 17547407 (Version 1)
Quarter: 2020Q1

REPORT INFORMATION
  Report Type: Spontaneous
  Country: US (occurrence: US)
  Receive Date: 20200316
  Receipt Date: 20200316
  Transmission Date: 20200409
  Serious: Yes (Other)
  Sender: FDA-Public Use
  Company Number: US-EPIC PHARMA LLC-2020EPC00099

PATIENT
  Age: 60 Year
  Sex: Female

DRUGS (3)
  1. PHENYTOIN. [Suspect]
     Active Substance: PHENYTOIN
     Indication: TEMPORAL LOBE EPILEPSY
     Dosage: 500 MG, 1X/DAY
     Route: 065
  2. LACOSAMIDE. [Suspect]
     Active Substance: LACOSAMIDE
     Indication: TEMPORAL LOBE EPILEPSY
     Dosage: 100 MG, 2X/DAY
     Route: 065
  3. LEVETIRACETAM XL [Concomitant]
     Indication: TEMPORAL LOBE EPILEPSY
     Dosage: 1500 MG, 1X/DAY
     Route: 065

REACTIONS (1)
  - Bradycardia [Recovered/Resolved]
